FAERS Safety Report 5379546-8 (Version None)
Quarter: 2007Q3

REPORT INFORMATION
  Report Type: 
  Country: None (occurrence: None)
  Receive Date: 20070703
  Receipt Date: 20070622
  Transmission Date: 20080115
  Serious: Yes (Hospitalization)
  Sender: FDA-Public Use
  Company Number: 156638USA

PATIENT
  Age: 43 Year
  Sex: Male

DRUGS (3)
  1. COPAXONE [Suspect]
     Indication: MULTIPLE SCLEROSIS
     Dosage: 20 MG, SUBCUTANEOUS
     Route: 058
     Dates: start: 20070301, end: 20070501
  2. FOLATE SODIUM [Concomitant]
  3. PREDNISONE [Concomitant]

REACTIONS (3)
  - PYREXIA [None]
  - RENAL FAILURE [None]
  - THROMBOCYTOPENIC PURPURA [None]
